FAERS Safety Report 6326120-2 (Version None)
Quarter: 2009Q3

REPORT INFORMATION
  Report Type: 
  Country: None (occurrence: None)
  Receive Date: 20090824
  Receipt Date: 20090819
  Transmission Date: 20100115
  Serious: Yes (Other)
  Sender: FDA-Public Use
  Company Number: PHHY2009JP35276

PATIENT
  Age: 12 Year
  Sex: Male

DRUGS (2)
  1. CYCLOSPORINE [Suspect]
     Indication: STEM CELL TRANSPLANT
  2. METHOTREXATE [Concomitant]
     Indication: STEM CELL TRANSPLANT

REACTIONS (5)
  - FEBRILE NEUTROPENIA [None]
  - NAUSEA [None]
  - ODYNOPHAGIA [None]
  - ORAL DISORDER [None]
  - ORAL PAIN [None]
